FAERS Safety Report 6100867-5 (Version None)
Quarter: 2009Q1

REPORT INFORMATION
  Report Type: 
  Country: None (occurrence: None)
  Receive Date: 20090224
  Receipt Date: 20090213
  Transmission Date: 20090719
  Serious: Yes (Other)
  Sender: FDA-Public Use
  Company Number: CHPA2009US04369

PATIENT
  Age: 84 Year
  Sex: Female
  Weight: 54.4 kg

DRUGS (6)
  1. VOLTAREN [Suspect]
     Indication: MUSCLE SPASMS
     Dosage: 4 G, BID, TOPICAL
     Route: 061
     Dates: start: 20090206, end: 20090213
  2. CYCLOBENZAPRINE [Suspect]
     Indication: MUSCLE RELAXANT THERAPY
     Dosage: 2 TAB, AT NIGHT
     Dates: start: 20090206, end: 20090212
  3. COUMADIN [Concomitant]
  4. METOPROLOL TARTRATE [Concomitant]
  5. LISINOPRIL [Concomitant]
  6. PROPYLTHIOURACIL [Concomitant]

REACTIONS (2)
  - DRUG ADMINISTERED AT INAPPROPRIATE SITE [None]
  - DRUG LEVEL INCREASED [None]
